FAERS Safety Report 8476320-0 (Version None)
Quarter: 2012Q2

REPORT INFORMATION
  Report Type: 
  Country: None (occurrence: None)
  Receive Date: 20120619
  Receipt Date: 20120608
  Transmission Date: 20120825
  Serious: Yes (Hospitalization)
  Sender: FDA-Public Use
  Company Number: 2012SP032174

PATIENT
  Age: 62 Year
  Sex: Male

DRUGS (9)
  1. ISENTRESS [Concomitant]
  2. CELLCEPT [Suspect]
     Indication: HEPATITIS C
     Dosage: 500 MG;BID;PO
     Route: 048
     Dates: end: 20120510
  3. VICTRELIS [Suspect]
     Indication: HEPATITIS C
     Dosage: 800 MG;TID;PO ; 600 MG;TID;PO
     Route: 048
     Dates: start: 20120201
  4. VIREAD [Concomitant]
  5. TACROLIMUS [Concomitant]
  6. NORVIR [Concomitant]
  7. PEGASYS [Suspect]
     Indication: HEPATITIS C
     Dosage: 90 MCG;QW;SC
     Route: 058
     Dates: start: 20120101
  8. REBETOL [Suspect]
     Indication: HEPATITIS C
     Dosage: 600 MG;QD;PO ; 400 MG;QD;PO
     Route: 048
     Dates: start: 20120101
  9. REYATAZ [Concomitant]

REACTIONS (2)
  - PANCYTOPENIA [None]
  - ANAEMIA [None]
